FAERS Safety Report 11211241 (Version 1)
Quarter: 2015Q2

REPORT INFORMATION
  Report Type: Spontaneous
  Country: US (occurrence: None)
  Receive Date: 20150619
  Receipt Date: 20150619
  Transmission Date: 20150821
  Serious: Yes (Hospitalization)
  Sender: FDA-Public Use
  Company Number: None

PATIENT
  Age: 78 Year
  Sex: Female
  Weight: 52.5 kg

DRUGS (20)
  1. VITAMIN C [Concomitant]
     Active Substance: ASCORBIC ACID
  2. VIT.B12 [Concomitant]
  3. ZOFRAN [Concomitant]
     Active Substance: ONDANSETRON HYDROCHLORIDE
  4. BETINAL [Concomitant]
  5. FENTANYL TRANSDERMAL SYSTEM [Suspect]
     Active Substance: FENTANYL
     Indication: RHEUMATOID ARTHRITIS
     Dosage: ON SKIN, Q 3 DAYS
     Route: 048
  6. VIT. D [Concomitant]
  7. MIRALAX [Concomitant]
     Active Substance: POLYETHYLENE GLYCOL 3350
  8. SILVADENE [Concomitant]
     Active Substance: SILVER SULFADIAZINE
  9. REMERON [Concomitant]
     Active Substance: MIRTAZAPINE
  10. CA [Concomitant]
  11. CORTEF [Concomitant]
     Active Substance: HYDROCORTISONE
  12. PRILOSEC [Concomitant]
     Active Substance: OMEPRAZOLE MAGNESIUM
  13. ZINCATE [Concomitant]
  14. LOVENOX [Concomitant]
     Active Substance: ENOXAPARIN SODIUM
  15. ERTAPENEM [Concomitant]
     Active Substance: ERTAPENEM
  16. PLAQUENIL [Concomitant]
     Active Substance: HYDROXYCHLOROQUINE SULFATE
  17. LANTUS [Concomitant]
     Active Substance: INSULIN GLARGINE
  18. DILAUDID [Suspect]
     Active Substance: HYDROMORPHONE HYDROCHLORIDE
     Indication: RHEUMATOID ARTHRITIS
     Dosage: PRN
     Route: 048
  19. TENORMIN [Concomitant]
     Active Substance: ATENOLOL
  20. MVI [Concomitant]
     Active Substance: VITAMINS

REACTIONS (5)
  - Laboratory test abnormal [None]
  - Acute kidney injury [None]
  - Urinary tract infection [None]
  - Mental status changes [None]
  - Hyponatraemia [None]

NARRATIVE: CASE EVENT DATE: 20150123
